FAERS Safety Report 11192061 (Version 4)
Quarter: 2015Q3

REPORT INFORMATION
  Report Type: Spontaneous
  Country: JP (occurrence: JP)
  Receive Date: 20150616
  Receipt Date: 20150721
  Transmission Date: 20151125
  Serious: Yes (Other)
  Sender: FDA-Public Use
  Company Number: JP-JNJFOC-20150419696

PATIENT
  Age: 60 Year
  Sex: Female

DRUGS (4)
  1. REBETOL [Suspect]
     Active Substance: RIBAVIRIN
     Indication: CHRONIC HEPATITIS C
     Route: 048
     Dates: start: 20141021, end: 20150317
  2. ALLOPURINOL. [Concomitant]
     Active Substance: ALLOPURINOL
     Indication: PRODUCT USED FOR UNKNOWN INDICATION
     Route: 048
  3. SOVRIAD [Suspect]
     Active Substance: SIMEPREVIR
     Indication: CHRONIC HEPATITIS C
     Route: 048
     Dates: start: 20141021, end: 20150114
  4. PEGINTRON [Suspect]
     Active Substance: PEGINTERFERON ALFA-2B
     Indication: CHRONIC HEPATITIS C
     Route: 058
     Dates: start: 20141021, end: 20150317

REACTIONS (6)
  - Blood uric acid increased [Unknown]
  - Abdominal discomfort [Unknown]
  - Hepatic function abnormal [Not Recovered/Not Resolved]
  - Hepatic enzyme increased [Unknown]
  - Hepatomegaly [Recovering/Resolving]
  - Splenomegaly [Recovering/Resolving]

NARRATIVE: CASE EVENT DATE: 201412
